FAERS Safety Report 4703002-0 (Version None)
Quarter: 2005Q2

REPORT INFORMATION
  Report Type: 
  Country: None (occurrence: None)
  Receive Date: 20050629
  Receipt Date: 20050523
  Transmission Date: 20051028
  Serious: Yes (Hospitalization, Other)
  Sender: FDA-Public Use
  Company Number: PHBS2005JP07325

PATIENT
  Age: 4 Year
  Sex: Female
  Weight: 13 kg

DRUGS (7)
  1. TEGRETOL [Suspect]
     Indication: INFANTILE SPASMS
     Dosage: 150 MG/DAY
     Route: 048
     Dates: start: 20050429, end: 20050507
  2. DEPAKENE [Concomitant]
     Indication: INFANTILE SPASMS
     Dosage: 12 ML/DAY
     Route: 048
     Dates: start: 20020118
  3. DEPAKENE [Concomitant]
     Dosage: 15 ML/DAY
     Route: 048
     Dates: end: 20050507
  4. BENZALIN [Concomitant]
     Indication: INFANTILE SPASMS
     Dosage: 7.5 MG/DAY
     Route: 048
     Dates: start: 20030501, end: 20050507
  5. ADEROXAL [Concomitant]
     Indication: INFANTILE SPASMS
     Dosage: 300 MG/DAY
     Route: 048
     Dates: start: 20031224, end: 20050507
  6. CLONAZEPAM [Concomitant]
     Indication: INFANTILE SPASMS
     Dosage: 1 MG/DAY
     Route: 048
     Dates: start: 20030526, end: 20050507
  7. LIORESAL [Concomitant]
     Indication: INFANTILE SPASMS
     Dosage: 10 MG/DAY
     Route: 048
     Dates: start: 20031118, end: 20050507

REACTIONS (13)
  - ALANINE AMINOTRANSFERASE INCREASED [None]
  - ASPARTATE AMINOTRANSFERASE INCREASED [None]
  - BLOOD ALKALINE PHOSPHATASE INCREASED [None]
  - BLOOD CREATINE PHOSPHOKINASE INCREASED [None]
  - BLOOD LACTATE DEHYDROGENASE INCREASED [None]
  - GAMMA-GLUTAMYLTRANSFERASE INCREASED [None]
  - HAEMATEMESIS [None]
  - HYPERTONIA [None]
  - MUSCLE RIGIDITY [None]
  - NEUROLEPTIC MALIGNANT SYNDROME [None]
  - PO2 DECREASED [None]
  - PYREXIA [None]
  - WHITE BLOOD CELL COUNT INCREASED [None]
